FAERS Safety Report 12434993 (Version 1)
Quarter: 2016Q2

REPORT INFORMATION
  Report Type: Spontaneous
  Country: US (occurrence: US)
  Receive Date: 20160603
  Receipt Date: 20160603
  Transmission Date: 20160815
  Serious: No
  Sender: FDA-Public Use
  Company Number: US-ROCHE-1719455

PATIENT
  Sex: Male

DRUGS (2)
  1. KLONOPIN [Suspect]
     Active Substance: CLONAZEPAM
     Indication: ANXIETY
  2. KLONOPIN [Suspect]
     Active Substance: CLONAZEPAM
     Indication: SCHIZOAFFECTIVE DISORDER
     Dosage: 0.25 TO 0.5MG
     Route: 065

REACTIONS (2)
  - Therapeutic response decreased [Unknown]
  - Drug dose omission [Unknown]
